FAERS Safety Report 13971937 (Version 1)
Quarter: 2017Q3

REPORT INFORMATION
  Report Type: Spontaneous
  Country: US (occurrence: US)
  Receive Date: 20170914
  Receipt Date: 20170914
  Transmission Date: 20171128
  Serious: No
  Sender: FDA-Public Use
  Company Number: None

PATIENT
  Age: 43 Year
  Sex: Female
  Weight: 56.25 kg

DRUGS (5)
  1. RABEPRAZOLE [Suspect]
     Active Substance: RABEPRAZOLE
     Indication: GASTRITIS
     Dates: start: 20170901, end: 20170907
  2. PEPCID AC [Concomitant]
     Active Substance: FAMOTIDINE
  3. ZINC. [Concomitant]
     Active Substance: ZINC
  4. NORTRIPTYLINE [Concomitant]
     Active Substance: NORTRIPTYLINE
  5. CARNOSINE [Concomitant]
     Active Substance: CARNOSINE

REACTIONS (4)
  - Myalgia [None]
  - Neck pain [None]
  - Oropharyngeal pain [None]
  - Pain [None]

NARRATIVE: CASE EVENT DATE: 20170907
